FAERS Safety Report 24996749 (Version 1)
Quarter: 2025Q1

REPORT INFORMATION
  Report Type: Spontaneous
  Country: JP (occurrence: JP)
  Receive Date: 20250221
  Receipt Date: 20250221
  Transmission Date: 20250409
  Serious: Yes (Life-Threatening, Other)
  Sender: ANI
  Company Number: JP-ANIPHARMA-2025-JP-000044

PATIENT
  Age: 65 Year
  Sex: Male

DRUGS (1)
  1. BICALUTAMIDE [Suspect]
     Active Substance: BICALUTAMIDE
     Indication: Prostate cancer
     Route: 048

REACTIONS (2)
  - Cardiomyopathy [Unknown]
  - Lung disorder [Unknown]
